FAERS Safety Report 14941426 (Version 2)
Quarter: 2018Q2

REPORT INFORMATION
  Report Type: Spontaneous
  Country: US (occurrence: US)
  Receive Date: 20180526
  Receipt Date: 20180629
  Transmission Date: 20180711
  Serious: No
  Sender: FDA-Public Use
  Company Number: US-009507513-1805USA002574

PATIENT
  Age: 35 Year
  Sex: Female
  Weight: 76.64 kg

DRUGS (4)
  1. NEXPLANON [Suspect]
     Active Substance: ETONOGESTREL
     Indication: CONTRACEPTION
     Dosage: 1 ROD, IN THE LEFT ARM, EVERY 3 YEARS
     Route: 059
     Dates: start: 20170526
  2. CLINDAMYCIN. [Concomitant]
     Active Substance: CLINDAMYCIN
     Indication: BACTERIAL VAGINOSIS
     Dosage: 300 MG, BID
     Route: 048
     Dates: start: 20180409, end: 20180416
  3. NEXPLANON [Suspect]
     Active Substance: ETONOGESTREL
     Indication: CONTRACEPTION
  4. ACYCLOVIR. [Concomitant]
     Active Substance: ACYCLOVIR
     Indication: GENITAL HERPES
     Dosage: 800 MG, TID
     Route: 048
     Dates: start: 20180409, end: 20180414

REACTIONS (6)
  - Genital herpes [Unknown]
  - Menstruation irregular [Unknown]
  - Bacterial vaginosis [Unknown]
  - Abdominal discomfort [Recovered/Resolved]
  - Menorrhagia [Recovered/Resolved]
  - Menstruation delayed [Unknown]

NARRATIVE: CASE EVENT DATE: 20170526
